FAERS Safety Report 12184885 (Version 1)
Quarter: 2016Q1

REPORT INFORMATION
  Report Type: Report from Study
  Country: US (occurrence: US)
  Receive Date: 20160316
  Receipt Date: 20160316
  Transmission Date: 20160526
  Serious: Yes (Other)
  Sender: FDA-Public Use
  Company Number: US-SA-2016SA049802

PATIENT
  Age: 64 Year
  Sex: Male
  Weight: 57 kg

DRUGS (5)
  1. CELECOXIB. [Suspect]
     Active Substance: CELECOXIB
     Route: 048
     Dates: start: 20150505, end: 20151102
  2. 5-FU [Suspect]
     Active Substance: FLUOROURACIL
     Route: 042
     Dates: start: 20150420
  3. 5-FU [Suspect]
     Active Substance: FLUOROURACIL
     Route: 042
     Dates: end: 20150922
  4. ELOXATIN [Suspect]
     Active Substance: OXALIPLATIN
     Dosage: FREQUENCY: OVER  2 HOURS ON DAY 1
     Route: 042
     Dates: start: 20150420, end: 20150922
  5. LEUCOVORIN CALCIUM. [Concomitant]
     Active Substance: LEUCOVORIN CALCIUM
     Dosage: TOTAL DOSE ADMINISTERED 648 MG. OVER 2 HOURS ON DAY 1
     Route: 042
     Dates: start: 20150420, end: 20150922

REACTIONS (1)
  - Pulmonary embolism [Unknown]

NARRATIVE: CASE EVENT DATE: 20151102
